FAERS Safety Report 17458128 (Version 1)
Quarter: 2020Q1

REPORT INFORMATION
  Report Type: Spontaneous
  Country: JP (occurrence: JP)
  Receive Date: 20200225
  Receipt Date: 20200225
  Transmission Date: 20200409
  Serious: Yes (Other)
  Sender: FDA-Public Use
  Company Number: JP-ROCHE-2554729

PATIENT
  Age: 32 Year
  Sex: Female

DRUGS (1)
  1. ALTEPLASE. [Suspect]
     Active Substance: ALTEPLASE
     Indication: SHOCK
     Dosage: 24,000,000 UNITS
     Route: 042

REACTIONS (5)
  - Intra-abdominal haemorrhage [Recovering/Resolving]
  - Peritoneal haematoma [Recovering/Resolving]
  - Anaphylactoid syndrome of pregnancy [Recovering/Resolving]
  - Foetal death [Unknown]
  - Maternal exposure during pregnancy [Unknown]
